FAERS Safety Report 8283581-X (Version None)
Quarter: 2012Q2

REPORT INFORMATION
  Report Type: 
  Country: None (occurrence: None)
  Receive Date: 20120413
  Receipt Date: 20120409
  Transmission Date: 20120825
  Serious: Yes (Other)
  Sender: FDA-Public Use
  Company Number: US-FRI-1000029680

PATIENT
  Sex: Female

DRUGS (3)
  1. SYMBICORT [Concomitant]
     Dosage: 2 PUFFS TWICE DAILY
     Route: 048
  2. DALIRESP [Suspect]
     Dosage: 500 MCG
     Route: 048
     Dates: end: 20120301
  3. LEVAQUIN [Concomitant]
     Indication: BRONCHITIS
     Dates: end: 20120101

REACTIONS (2)
  - SUPRAVENTRICULAR TACHYCARDIA [None]
  - INSOMNIA [None]
